FAERS Safety Report 8158356-2 (Version None)
Quarter: 2012Q1

REPORT INFORMATION
  Report Type: 
  Country: None (occurrence: None)
  Receive Date: 20120217
  Receipt Date: 20120116
  Transmission Date: 20120608
  Serious: Yes (Hospitalization)
  Sender: FDA-Public Use
  Company Number: 001096103

PATIENT
  Sex: Male

DRUGS (4)
  1. PROACTIV 30 DAY KIT (PA30) [Suspect]
  2. PROACTIV 30 DAY KIT (PA30) [Suspect]
  3. PROACTIV 30 DAY KIT (PA30) [Suspect]
  4. PROACTIV 30 DAY KIT (PA30) [Suspect]
     Indication: ACNE
     Dosage: DAILY

REACTIONS (3)
  - EYE SWELLING [None]
  - MULTIPLE ALLERGIES [None]
  - OCULAR HYPERAEMIA [None]
